FAERS Safety Report 6235383-3 (Version None)
Quarter: 2009Q2

REPORT INFORMATION
  Report Type: 
  Country: None (occurrence: None)
  Receive Date: 20090618
  Receipt Date: 20080725
  Transmission Date: 20091009
  Serious: Yes (Other)
  Sender: FDA-Public Use
  Company Number: US-ASTRAZENECA-2008UW15485

PATIENT
  Age: 14 Year
  Sex: Female

DRUGS (12)
  1. ENTOCORT EC [Suspect]
     Indication: GASTROENTERITIS EOSINOPHILIC
     Route: 048
     Dates: start: 20080606, end: 20080715
  2. ENTOCORT EC [Suspect]
     Route: 048
     Dates: start: 20080716
  3. PREDNISONE [Suspect]
     Indication: GASTROENTERITIS EOSINOPHILIC
     Dates: start: 20080606, end: 20080715
  4. PREDNISONE [Suspect]
     Dates: start: 20080716
  5. CYCLOSPORINE [Concomitant]
  6. VALGANCICLOVIR HCL [Concomitant]
  7. OMEPRAZOLE [Concomitant]
  8. URSODIOL [Concomitant]
  9. IRON [Concomitant]
  10. CALCIUM [Concomitant]
  11. MULTI-VITAMINS [Concomitant]
  12. FLOVENT [Concomitant]

REACTIONS (4)
  - CUSHING'S SYNDROME [None]
  - HEPATIC ENZYME ABNORMAL [None]
  - HYPERPHAGIA [None]
  - OEDEMA [None]
